FAERS Safety Report 4947288-6 (Version None)
Quarter: 2006Q1

REPORT INFORMATION
  Report Type: 
  Country: None (occurrence: None)
  Receive Date: 20060317
  Receipt Date: 20060308
  Transmission Date: 20060701
  Serious: Yes (Hospitalization)
  Sender: FDA-Public Use
  Company Number: US-BRISTOL-MYERS SQUIBB COMPANY-13308697

PATIENT
  Age: 71 Year
  Sex: Male
  Weight: 84 kg

DRUGS (3)
  1. CETUXIMAB [Suspect]
     Indication: SQUAMOUS CELL CARCINOMA
     Dosage: INITIAL TX DATE: 24-JAN-06.  TOTAL DOSE ADM THIS COURSE (FOUR): 530MG.
     Route: 042
     Dates: start: 20060221, end: 20060221
  2. CISPLATIN [Suspect]
     Indication: SQUAMOUS CELL CARCINOMA
     Dosage: INITIAL TX DATE: 24-JAN-06. TOTAL DOSE ADM THIS COURSE (FOUR): 64MG.
     Route: 042
     Dates: start: 20060221, end: 20060221
  3. RADIATION THERAPY [Suspect]
     Indication: SQUAMOUS CELL CARCINOMA
     Dates: start: 20060303, end: 20060303

REACTIONS (1)
  - PNEUMONITIS [None]
